FAERS Safety Report 4977822-1 (Version None)
Quarter: 2006Q2

REPORT INFORMATION
  Report Type: 
  Country: None (occurrence: None)
  Receive Date: 20060420
  Receipt Date: 20060410
  Transmission Date: 20061013
  Serious: Yes (Other)
  Sender: FDA-Public Use
  Company Number: ZA-JNJFOC-20060402305

PATIENT
  Sex: Male

DRUGS (1)
  1. TRAMAL [Suspect]
     Indication: BACK PAIN
     Route: 048

REACTIONS (7)
  - DISORIENTATION [None]
  - HYPERHIDROSIS [None]
  - HYPERTENSION [None]
  - SWELLING FACE [None]
  - SYNCOPE [None]
  - TONGUE DISORDER [None]
  - VISION BLURRED [None]
